FAERS Safety Report 4475485-5 (Version None)
Quarter: 2004Q4

REPORT INFORMATION
  Report Type: 
  Country: None (occurrence: None)
  Receive Date: 20041015
  Receipt Date: 20040820
  Transmission Date: 20050328
  Serious: Yes (Other)
  Sender: FDA-Public Use
  Company Number: ES-MERCK-0408ESP00013

PATIENT
  Age: 30 Year
  Sex: Female
  Weight: 54 kg

DRUGS (3)
  1. FOSFOMYCIN TROMETHAMINE [Concomitant]
     Indication: URINARY TRACT INFECTION
     Route: 048
     Dates: start: 20040818, end: 20040819
  2. MAXALT [Suspect]
     Indication: MIGRAINE
     Route: 048
     Dates: start: 20040809, end: 20040809
  3. MAXALT [Suspect]
     Route: 048
     Dates: start: 20040813, end: 20040813

REACTIONS (2)
  - ABORTION THREATENED [None]
  - DRUG EXPOSURE DURING PREGNANCY [None]
